FAERS Safety Report 5023161-2 (Version None)
Quarter: 2006Q2

REPORT INFORMATION
  Report Type: 
  Country: None (occurrence: None)
  Receive Date: 20060612
  Receipt Date: 20060602
  Transmission Date: 20061013
  Serious: Yes (Other)
  Sender: FDA-Public Use
  Company Number: FR-JNJFOC-20060600648

PATIENT
  Age: 59 Year
  Sex: Female

DRUGS (3)
  1. CAELYX [Suspect]
     Route: 042
  2. CAELYX [Suspect]
     Indication: OVARIAN CANCER METASTATIC
     Route: 042
  3. CHRONADALATE [Concomitant]

REACTIONS (2)
  - DERMATITIS BULLOUS [None]
  - RASH PRURITIC [None]
